FAERS Safety Report 6483890-0 (Version None)
Quarter: 2009Q4

REPORT INFORMATION
  Report Type: 
  Country: None (occurrence: None)
  Receive Date: 20091208
  Receipt Date: 20091208
  Transmission Date: 20100525
  Serious: Yes (Other)
  Sender: FDA-Public Use
  Company Number: None

PATIENT
  Age: 15 Year
  Sex: Male
  Weight: 113.6 kg

DRUGS (1)
  1. LAMOTRIGINE [Suspect]
     Indication: EPILEPSY
     Dosage: 1 1/2 PO BID
     Route: 048
     Dates: start: 20080723

REACTIONS (2)
  - CONVULSION [None]
  - DRUG LEVEL FLUCTUATING [None]
